FAERS Safety Report 7378230-9 (Version None)
Quarter: 2011Q1

REPORT INFORMATION
  Report Type: 
  Country: None (occurrence: None)
  Receive Date: 20110328
  Receipt Date: 20110318
  Transmission Date: 20110831
  Serious: Yes (Other)
  Sender: FDA-Public Use
  Company Number: A0920096A

PATIENT
  Sex: Female

DRUGS (1)
  1. PAXIL [Suspect]
     Indication: PRODUCT USED FOR UNKNOWN INDICATION
     Route: 064

REACTIONS (13)
  - PATENT DUCTUS ARTERIOSUS [None]
  - IMMATURE RESPIRATORY SYSTEM [None]
  - ANAEMIA NEONATAL [None]
  - MATERNAL DRUGS AFFECTING FOETUS [None]
  - PREMATURE BABY [None]
  - DRUG EXPOSURE DURING PREGNANCY [None]
  - SEPSIS NEONATAL [None]
  - GASTROOESOPHAGEAL REFLUX DISEASE [None]
  - ATRIAL SEPTAL DEFECT [None]
  - HYPERBILIRUBINAEMIA NEONATAL [None]
  - BRONCHOPULMONARY DYSPLASIA [None]
  - NEONATAL HYPOTENSION [None]
  - INFANTILE APNOEIC ATTACK [None]
